FAERS Safety Report 10047723 (Version 2)
Quarter: 2014Q2

REPORT INFORMATION
  Report Type: Spontaneous
  Country: GB (occurrence: GB)
  Receive Date: 20140331
  Receipt Date: 20140527
  Transmission Date: 20141212
  Serious: Yes (Other)
  Sender: FDA-Public Use
  Company Number: GB-UCBSA-115710

PATIENT
  Age: 64 Year
  Sex: Male
  Weight: 90.3 kg

DRUGS (3)
  1. VIMPAT [Suspect]
     Indication: EPILEPSY
     Dosage: UNKNOWN DOSE:ONCE DAILY; NO OF DOSES RECEIVED:1-2 WEEK
     Route: 048
     Dates: start: 201305, end: 201306
  2. TOPIRAMATE [Concomitant]
     Indication: EPILEPSY
     Dosage: STARTED PRIOR TO 1995
     Route: 048
  3. TEGRETOL PROLONGED RELEASE [Concomitant]
     Indication: EPILEPSY
     Route: 048
     Dates: start: 1992

REACTIONS (7)
  - Circulatory collapse [Recovered/Resolved]
  - Electrocardiogram PR prolongation [Recovered/Resolved]
  - Epilepsy congenital [Unknown]
  - Atrioventricular block [Recovered/Resolved]
  - Sinus bradycardia [Unknown]
  - Disorientation [Unknown]
  - Nausea [Unknown]
